FAERS Safety Report 6029380-0 (Version None)
Quarter: 2009Q1

REPORT INFORMATION
  Report Type: 
  Country: None (occurrence: None)
  Receive Date: 20090105
  Receipt Date: 20081222
  Transmission Date: 20090719
  Serious: Yes (Other)
  Sender: FDA-Public Use
  Company Number: S08-CAN-00733-01

PATIENT
  Sex: Female
  Weight: 65 kg

DRUGS (6)
  1. CELEXA [Suspect]
     Indication: DEPRESSION
     Dosage: 10 MG (10 MG, 1 IN 1 D), ORAL
     Route: 048
     Dates: start: 20030801, end: 20030814
  2. CELEXA [Suspect]
     Indication: MENOPAUSAL SYMPTOMS
     Dosage: 10 MG (10 MG, 1 IN 1 D), ORAL
     Route: 048
     Dates: start: 20030801, end: 20030814
  3. CELEXA [Suspect]
     Indication: DEPRESSION
     Dosage: 20 MG (20 MG, 1 IN 1 D), ORAL
     Route: 048
     Dates: start: 20030815, end: 20070901
  4. CELEXA [Suspect]
     Indication: MENOPAUSAL SYMPTOMS
     Dosage: 20 MG (20 MG, 1 IN 1 D), ORAL
     Route: 048
     Dates: start: 20030815, end: 20070901
  5. PARIET (10 MILLIGRAM, TABLETS) [Concomitant]
  6. LIPITOR (ATORVASTATIN) (TABLETS) (ATORVASTATIN) [Concomitant]

REACTIONS (6)
  - DIARRHOEA [None]
  - DYSPEPSIA [None]
  - GASTROOESOPHAGEAL REFLUX DISEASE [None]
  - HELICOBACTER INFECTION [None]
  - HIATUS HERNIA [None]
  - WEIGHT INCREASED [None]
